FAERS Safety Report 5333255-X (Version None)
Quarter: 2007Q2

REPORT INFORMATION
  Report Type: 
  Country: None (occurrence: None)
  Receive Date: 20070524
  Receipt Date: 20070516
  Transmission Date: 20071010
  Serious: Yes (Hospitalization)
  Sender: FDA-Public Use
  Company Number: US-JNJFOC-20070505121

PATIENT
  Sex: Male
  Weight: 69.1 kg

DRUGS (3)
  1. DOXORUBICIN HCL [Suspect]
     Indication: MULTIPLE MYELOMA
     Dosage: DAY 1,15
     Route: 042
     Dates: start: 20060905, end: 20070511
  2. VELCADE [Suspect]
     Indication: MULTIPLE MYELOMA
     Dosage: DAY 1,4,15,18
     Route: 042
     Dates: start: 20060905, end: 20070511
  3. THALIDOMIDE [Suspect]
     Indication: MULTIPLE MYELOMA
     Route: 048
     Dates: start: 20060905, end: 20070515

REACTIONS (2)
  - BRADYCARDIA [None]
  - CARDIAC DISORDER [None]
